FAERS Safety Report 6330061-4 (Version None)
Quarter: 2009Q3

REPORT INFORMATION
  Report Type: 
  Country: None (occurrence: None)
  Receive Date: 20090826
  Receipt Date: 20090826
  Transmission Date: 20100115
  Serious: Yes (Disabling, Other)
  Sender: FDA-Public Use
  Company Number: None

PATIENT
  Age: 55 Year
  Sex: Male
  Weight: 72.5755 kg

DRUGS (1)
  1. HUMIRA [Suspect]
     Indication: RHEUMATOID ARTHRITIS
     Dosage: 40MG SYRINGE EVERY 2 WEEKS
     Dates: start: 20080105, end: 20090814

REACTIONS (5)
  - CARDIAC MURMUR [None]
  - FATIGUE [None]
  - HYPOTONIA [None]
  - LUNG NEOPLASM [None]
  - SQUAMOUS CELL CARCINOMA OF SKIN [None]
